FAERS Safety Report 13655648 (Version 1)
Quarter: 2017Q2

REPORT INFORMATION
  Report Type: Spontaneous
  Country: US (occurrence: US)
  Receive Date: 20170614
  Receipt Date: 20170614
  Transmission Date: 20170830
  Serious: Yes (Other)
  Sender: FDA-Public Use
  Company Number: None

PATIENT
  Age: 81 Year
  Sex: Female

DRUGS (6)
  1. METFORMIN [Concomitant]
     Active Substance: METFORMIN HYDROCHLORIDE
  2. LOVASTATIN. [Concomitant]
     Active Substance: LOVASTATIN
  3. GLIPIZIDE. [Concomitant]
     Active Substance: GLIPIZIDE
  4. LOSARTAN. [Concomitant]
     Active Substance: LOSARTAN
  5. ESBRIET [Suspect]
     Active Substance: PIRFENIDONE
     Indication: ORGANISING PNEUMONIA
     Route: 048
     Dates: start: 201704
  6. OMEPRAZOLE. [Concomitant]
     Active Substance: OMEPRAZOLE

REACTIONS (3)
  - Headache [None]
  - Back pain [None]
  - Unevaluable event [None]

NARRATIVE: CASE EVENT DATE: 20170612
